FAERS Safety Report 8570405 (Version 13)
Quarter: 2013Q4

REPORT INFORMATION
  Report Type: Report from Study
  Country: CA (occurrence: CA)
  Receive Date: 20120521
  Receipt Date: 20131212
  Transmission Date: 20140711
  Serious: Yes (Other)
  Sender: FDA-Public Use
  Company Number: PHHY2011CA49964

PATIENT
  Age: 41 Year
  Sex: Male

DRUGS (6)
  1. SANDOSTATIN LAR [Suspect]
     Indication: CARCINOID TUMOUR
     Dosage: 30 MG, EVERY 4 WEEKS
     Route: 030
     Dates: start: 20110208
  2. SANDOSTATIN LAR [Suspect]
     Dosage: 30 MG, QMO
     Route: 030
  3. SANDOSTATIN LAR [Suspect]
     Dosage: 30 MG, EVERY 4 WEEKS
     Route: 030
     Dates: end: 20130313
  4. AFINITOR [Suspect]
     Indication: CARCINOID TUMOUR
     Dosage: 10 MG, ONCE DAILY
     Route: 048
     Dates: start: 20120423
  5. AFINITOR [Suspect]
     Dosage: UNK
     Route: 048
     Dates: start: 20130414
  6. AFINITOR [Suspect]
     Dosage: 5 MG
     Route: 048
     Dates: start: 20130422

REACTIONS (16)
  - General physical health deterioration [Unknown]
  - Terminal state [Unknown]
  - Fall [Unknown]
  - Loss of consciousness [Unknown]
  - Malignant pleural effusion [Recovering/Resolving]
  - Pulmonary oedema [Unknown]
  - Head injury [Unknown]
  - Pain [Recovering/Resolving]
  - Pain in extremity [Recovering/Resolving]
  - Back pain [Recovering/Resolving]
  - Injection site haemorrhage [Unknown]
  - Gait disturbance [Unknown]
  - Muscular weakness [Not Recovered/Not Resolved]
  - Dyspnoea [Unknown]
  - Heart rate increased [Unknown]
  - Diarrhoea [Unknown]
